FAERS Safety Report 5377431-9 (Version None)
Quarter: 2007Q3

REPORT INFORMATION
  Report Type: 
  Country: None (occurrence: None)
  Receive Date: 20070703
  Receipt Date: 20070629
  Transmission Date: 20080115
  Serious: Yes (Other)
  Sender: FDA-Public Use
  Company Number: B0477459A

PATIENT
  Age: 56 Year
  Sex: Female

DRUGS (3)
  1. CEFUROXIME [Suspect]
     Indication: BRONCHITIS
     Dosage: 250MG TWICE PER DAY
     Route: 048
     Dates: start: 20070619, end: 20070626
  2. ATORVASTATIN CALCIUM [Concomitant]
  3. DETENSIEL [Concomitant]
     Indication: HYPERTENSION

REACTIONS (1)
  - VISUAL ACUITY REDUCED [None]
